FAERS Safety Report 10252794 (Version 1)
Quarter: 2014Q2

REPORT INFORMATION
  Report Type: Spontaneous
  Country: US (occurrence: US)
  Receive Date: 20140623
  Receipt Date: 20140623
  Transmission Date: 20141212
  Serious: No
  Sender: FDA-Public Use
  Company Number: US-PFIZER INC-2014171870

PATIENT
  Sex: Male

DRUGS (2)
  1. NEURONTIN [Suspect]
     Indication: PAIN
     Dosage: UNK
     Dates: end: 20140522
  2. NEURONTIN [Suspect]
     Indication: BURNING SENSATION

REACTIONS (1)
  - Dizziness [Unknown]
